FAERS Safety Report 10637313 (Version 7)
Quarter: 2022Q1

REPORT INFORMATION
  Report Type: Spontaneous
  Country: US (occurrence: US)
  Receive Date: 20141208
  Receipt Date: 20220308
  Transmission Date: 20220424
  Serious: No
  Sender: FDA-Public Use
  Company Number: US-009507513-1412USA002514

PATIENT
  Age: 69 Year
  Sex: Male

DRUGS (6)
  1. PROVENTIL [Suspect]
     Active Substance: ALBUTEROL
     Indication: Bronchospasm
     Dosage: 90 MICROGRAM, UNK
     Route: 055
  2. PROVENTIL [Suspect]
     Active Substance: ALBUTEROL
     Dosage: 1 STANDARD DOSE OF 6.7
  3. PROVENTIL [Suspect]
     Active Substance: ALBUTEROL
     Dosage: UNK
  4. PROVENTIL [Suspect]
     Active Substance: ALBUTEROL
     Dosage: UNK
  5. PROVENTIL [Suspect]
     Active Substance: ALBUTEROL
     Dosage: AS NEEDED
  6. PROVENTIL [Suspect]
     Active Substance: ALBUTEROL
     Dosage: AS NEEDED

REACTIONS (12)
  - Wheezing [Not Recovered/Not Resolved]
  - Headache [Recovered/Resolved]
  - Headache [Unknown]
  - Adverse event [Unknown]
  - Product dose omission issue [Unknown]
  - Product delivery mechanism issue [Unknown]
  - Poor quality device used [Unknown]
  - Device malfunction [Unknown]
  - Poor quality device used [Unknown]
  - Product container issue [Unknown]
  - Product dose omission issue [Unknown]
  - Product packaging quantity issue [Unknown]

NARRATIVE: CASE EVENT DATE: 20210404
